FAERS Safety Report 5579300-8 (Version None)
Quarter: 2008Q1

REPORT INFORMATION
  Report Type: 
  Country: None (occurrence: None)
  Receive Date: 20080102
  Receipt Date: 20071212
  Transmission Date: 20080703
  Serious: Yes (Hospitalization)
  Sender: FDA-Public Use
  Company Number: JP-BAYER-200711047BYL

PATIENT
  Age: 88 Year
  Sex: Female

DRUGS (1)
  1. ASPIRIN [Suspect]
     Indication: LACUNAR INFARCTION
     Route: 048

REACTIONS (2)
  - HAEMORRHAGIC ANAEMIA [None]
  - SMALL INTESTINAL HAEMORRHAGE [None]
